FAERS Safety Report 11803950 (Version 1)
Quarter: 2015Q4

REPORT INFORMATION
  Report Type: Spontaneous
  Country: US (occurrence: US)
  Receive Date: 20151204
  Receipt Date: 20151204
  Transmission Date: 20160305
  Serious: Yes (Other)
  Sender: FDA-Public Use
  Company Number: US-PFIZER INC-2015412088

PATIENT
  Age: 72 Year
  Sex: Male
  Weight: 70.31 kg

DRUGS (1)
  1. VIAGRA [Suspect]
     Active Substance: SILDENAFIL CITRATE
     Dosage: SOMETIMES TAKE 1/2 AND SOMETIMES 3/4.  SOMETIMES HE WOULD TAKE IT ALL.
     Dates: end: 20151121

REACTIONS (1)
  - Dementia [Recovering/Resolving]

NARRATIVE: CASE EVENT DATE: 20151121
